FAERS Safety Report 4678901-9 (Version None)
Quarter: 2005Q2

REPORT INFORMATION
  Report Type: 
  Country: None (occurrence: None)
  Receive Date: 20050525
  Receipt Date: 20050405
  Transmission Date: 20051028
  Serious: No
  Sender: FDA-Public Use
  Company Number: 213590

PATIENT
  Age: 55 Year
  Sex: Female
  Weight: 120.2 kg

DRUGS (3)
  1. RAPTIVA [Suspect]
     Indication: PSORIASIS
     Dosage: 1.2 ML, 1/WEEK, SUCUTANEOUS
     Route: 058
  2. STEROIDS (UNK INGREDIENTS) (STEROID NOS) [Concomitant]
  3. PUVA (PHOTOTHERAPY, PSORALEN) [Concomitant]

REACTIONS (1)
  - LIVER FUNCTION TEST ABNORMAL [None]
